FAERS Safety Report 5872773-2 (Version None)
Quarter: 2008Q3

REPORT INFORMATION
  Report Type: 
  Country: None (occurrence: None)
  Receive Date: 20080902
  Receipt Date: 20071024
  Transmission Date: 20090109
  Serious: Yes (Hospitalization)
  Sender: FDA-Public Use
  Company Number: 2007-01032FE

PATIENT
  Age: 48 Year
  Sex: Male

DRUGS (3)
  1. LUTEINIZING HORMONE RELEASING HORMONE () (LUTEINIZING HORMONE-RELEASIN [Suspect]
     Indication: DIAGNOSTIC PROCEDURE
     Dosage: 100 MCG ONCE IV
     Route: 042
  2. TRH (TRH) (PROTIRELIN) [Suspect]
     Indication: DIAGNOSTIC PROCEDURE
     Dosage: 200 MCG ONCE IV
     Route: 042
  3. INSULIN () (INSULIN) [Suspect]
     Indication: DIAGNOSTIC PROCEDURE
     Dosage: IV
     Route: 042

REACTIONS (14)
  - BLOOD GLUCOSE DECREASED [None]
  - BLOOD GLUCOSE INCREASED [None]
  - CAROTID ARTERY OCCLUSION [None]
  - DEPRESSED LEVEL OF CONSCIOUSNESS [None]
  - HEADACHE [None]
  - HEMIPARESIS [None]
  - HYPERHIDROSIS [None]
  - HYPOAESTHESIA [None]
  - OPHTHALMOPLEGIA [None]
  - PITUITARY HAEMORRHAGE [None]
  - PITUITARY TUMOUR BENIGN [None]
  - UNRESPONSIVE TO STIMULI [None]
  - VISION BLURRED [None]
  - VOMITING [None]
